FAERS Safety Report 24569929 (Version 1)
Quarter: 2024Q4

REPORT INFORMATION
  Report Type: Spontaneous
  Country: US (occurrence: None)
  Receive Date: 20241031
  Receipt Date: 20241031
  Transmission Date: 20250115
  Serious: Yes (Death)
  Sender: Public
  Company Number: None

PATIENT
  Age: 70 Year
  Sex: Male
  Weight: 72.9 kg

DRUGS (9)
  1. REVLIMID [Suspect]
     Active Substance: LENALIDOMIDE
     Indication: Plasma cell myeloma
     Dosage: 1 TOT - TOTAL DAILY ORAL
     Route: 048
     Dates: start: 20240819, end: 20241018
  2. DEXAMETHASONE [Concomitant]
     Active Substance: DEXAMETHASONE
  3. SINGULAIR [Concomitant]
     Active Substance: MONTELUKAST SODIUM
  4. ACYCLOVIR [Concomitant]
     Active Substance: ACYCLOVIR
  5. ondansetron 4 mg disintegrating tablet [Concomitant]
  6. Tylenol 325 mg tablet [Concomitant]
  7. PREGABALIN 100 MG CAPSULE [Concomitant]
  8. BACLOFEN 10MG TABLE [Concomitant]
  9. HUMALOG 100 U/ML KWIK PEN INJ 3ML [Concomitant]

REACTIONS (1)
  - Death [None]

NARRATIVE: CASE EVENT DATE: 20241018
